FAERS Safety Report 25452140 (Version 2)
Quarter: 2025Q3

REPORT INFORMATION
  Report Type: Spontaneous
  Country: US (occurrence: US)
  Receive Date: 20250618
  Receipt Date: 20250808
  Transmission Date: 20251021
  Serious: No
  Sender: MERZ
  Company Number: US-MRZWEB-2025060000081

PATIENT

DRUGS (10)
  1. XEOMIN [Suspect]
     Active Substance: INCOBOTULINUMTOXINA
     Indication: Skin cosmetic procedure
     Dosage: 72 INTERNATIONAL UNIT
     Route: 058
     Dates: start: 20250528, end: 20250528
  2. XEOMIN [Suspect]
     Active Substance: INCOBOTULINUMTOXINA
     Indication: Skin wrinkling
  3. XEOMIN [Suspect]
     Active Substance: INCOBOTULINUMTOXINA
     Indication: Skin wrinkling
  4. XEOMIN [Suspect]
     Active Substance: INCOBOTULINUMTOXINA
     Indication: Skin cosmetic procedure
  5. PROPRANOLOL [Concomitant]
     Active Substance: PROPRANOLOL HYDROCHLORIDE
     Indication: Neuropathy peripheral
  6. CLONIDINE [Concomitant]
     Active Substance: CLONIDINE
     Indication: Neuropathy peripheral
  7. GABAPENTIN [Concomitant]
     Active Substance: GABAPENTIN
     Indication: Neuropathy peripheral
  8. CLONAZEPAM [Concomitant]
     Active Substance: CLONAZEPAM
     Indication: Neuropathy peripheral
  9. CITRULLINE [Concomitant]
     Active Substance: CITRULLINE
     Indication: Neuropathy peripheral
  10. NUVARING [Concomitant]
     Active Substance: ETHINYL ESTRADIOL\ETONOGESTREL

REACTIONS (5)
  - Injection site mass [Unknown]
  - Injection site bruising [Unknown]
  - Injection site pain [Unknown]
  - Incorrect route of product administration [Unknown]
  - Product use in unapproved indication [Unknown]

NARRATIVE: CASE EVENT DATE: 20250101
